FAERS Safety Report 11303395 (Version 1)
Quarter: 2015Q3

REPORT INFORMATION
  Report Type: Spontaneous
  Country: US (occurrence: US)
  Receive Date: 20150723
  Receipt Date: 20150723
  Transmission Date: 20151125
  Serious: No
  Sender: FDA-Public Use
  Company Number: US-JNJFOC-20141209599

PATIENT
  Age: 60 Year
  Sex: Female
  Weight: 74.39 kg

DRUGS (4)
  1. ZYRTEC [Suspect]
     Active Substance: CETIRIZINE HYDROCHLORIDE
     Route: 048
  2. ZYRTEC [Suspect]
     Active Substance: CETIRIZINE HYDROCHLORIDE
     Indication: PRURITUS GENERALISED
     Dosage: 1 TABLET, INTERVAL: 24 HOURS; ABOUT 3 WEEKS
     Route: 048
     Dates: end: 20141210
  3. MELOXICAM. [Concomitant]
     Active Substance: MELOXICAM
     Indication: SYSTEMIC LUPUS ERYTHEMATOSUS
     Dosage: INTERVAL: 6 TO 7 YEARS
     Route: 065
  4. PLAQUENIL [Concomitant]
     Active Substance: HYDROXYCHLOROQUINE SULFATE
     Indication: SYSTEMIC LUPUS ERYTHEMATOSUS
     Dosage: INTERVAL: YEARS
     Route: 065
     Dates: start: 1986

REACTIONS (2)
  - Product use issue [Unknown]
  - Drug effect decreased [Unknown]
